FAERS Safety Report 11688780 (Version 1)
Quarter: 2015Q4

REPORT INFORMATION
  Report Type: Spontaneous
  Country: US (occurrence: US)
  Receive Date: 20151102
  Receipt Date: 20151102
  Transmission Date: 20160304
  Serious: Yes (Hospitalization)
  Sender: FDA-Public Use
  Company Number: US-ABBVIE-15K-163-1491901-00

PATIENT
  Age: 30 Year
  Sex: Female

DRUGS (1)
  1. HUMIRA [Suspect]
     Active Substance: ADALIMUMAB
     Indication: ANKYLOSING SPONDYLITIS
     Dosage: 2 DOSES
     Route: 058
     Dates: start: 201407, end: 201407

REACTIONS (6)
  - Photophobia [Recovered/Resolved]
  - Eye pain [Recovered/Resolved]
  - Fatigue [Recovered/Resolved]
  - Rash generalised [Recovered/Resolved]
  - Pyrexia [Recovered/Resolved]
  - Coxsackie virus test positive [Recovered/Resolved]

NARRATIVE: CASE EVENT DATE: 201407
